FAERS Safety Report 7148701-9 (Version None)
Quarter: 2010Q4

REPORT INFORMATION
  Report Type: 
  Country: None (occurrence: None)
  Receive Date: 20101209
  Receipt Date: 20101209
  Transmission Date: 20110411
  Serious: Yes (Hospitalization)
  Sender: FDA-Public Use
  Company Number: US-ROCHE-743589

PATIENT
  Sex: Female
  Weight: 58.1 kg

DRUGS (16)
  1. BEVACIZUMAB [Suspect]
     Indication: NON-SMALL CELL LUNG CANCER
     Dosage: FREQUENCY: UNSPECIFIED, LAST DOSE PRIOR SAE: 13 APRIL 2009.
     Route: 042
     Dates: start: 20081107
  2. GEMCITABINE [Suspect]
     Indication: NON-SMALL CELL LUNG CANCER
     Dosage: FREQUENCY: UNSPECIFIED, LAST DOSE PRIOR SAE: 13 APRIL 2009.
     Route: 042
     Dates: start: 20081107
  3. PEMETREXED [Suspect]
     Indication: NON-SMALL CELL LUNG CANCER
     Dosage: TOTAL DOSE: 885 MG, FREQUENCY: UNSPECIFIED, LAST DOSE PRIOR SAE: 13 APRIL 2009.
     Route: 042
     Dates: start: 20081107
  4. LANOXIN [Concomitant]
  5. ZESTRIL [Concomitant]
  6. VERAPAMIL [Concomitant]
  7. POTASSIUM CHLORURE [Concomitant]
  8. PREMARIN [Concomitant]
  9. PAXIL [Concomitant]
  10. DEXAMETHASONE [Concomitant]
  11. AMARYL [Concomitant]
  12. ZOFRAN [Concomitant]
  13. MINOCYCLINE HCL [Concomitant]
  14. VITAMIN B-12 [Concomitant]
     Dates: start: 20090316
  15. FOLIC ACID [Concomitant]
  16. INDAPAMIDE [Concomitant]

REACTIONS (1)
  - PERIPHERAL ARTERIAL OCCLUSIVE DISEASE [None]
